FAERS Safety Report 9459706 (Version 2)
Quarter: 2013Q3

REPORT INFORMATION
  Report Type: Spontaneous
  Country: US (occurrence: US)
  Receive Date: 20130815
  Receipt Date: 20130820
  Transmission Date: 20140515
  Serious: Yes (Hospitalization)
  Sender: FDA-Public Use
  Company Number: US-SANOFI-AVENTIS-2013SA080890

PATIENT
  Age: 78 Year
  Sex: Female
  Weight: 87.08 kg

DRUGS (4)
  1. PLAVIX [Suspect]
     Indication: STENT PLACEMENT
     Route: 048
  2. AMARYL [Suspect]
     Route: 048
  3. LANTUS SOLOSTAR [Suspect]
     Indication: TYPE 2 DIABETES MELLITUS
     Dosage: TAKEN FROM:SEVERAL YEARS. DOSE:28 UNIT(S)
     Route: 051
  4. SOLOSTAR [Concomitant]
     Indication: TYPE 2 DIABETES MELLITUS

REACTIONS (16)
  - Asthenia [Unknown]
  - Hyperhidrosis [Unknown]
  - Musculoskeletal pain [Unknown]
  - Urinary incontinence [Unknown]
  - Anxiety [Unknown]
  - Arrhythmia [Unknown]
  - Hypertension [Unknown]
  - Myocardial infarction [Unknown]
  - Vomiting [Unknown]
  - Malaise [Unknown]
  - Amnesia [Unknown]
  - Weight decreased [Unknown]
  - Adverse event [Unknown]
  - Blood glucose increased [Unknown]
  - Drug ineffective [Unknown]
  - Drug dose omission [Unknown]
